FAERS Safety Report 13124845 (Version 5)
Quarter: 2017Q1

REPORT INFORMATION
  Report Type: Report from Study
  Country: BR (occurrence: BR)
  Receive Date: 20170118
  Receipt Date: 20170206
  Transmission Date: 20170428
  Serious: Yes (Death, Hospitalization)
  Sender: FDA-Public Use
  Company Number: BR-ROCHE-1878654

PATIENT
  Age: 67 Year
  Sex: Female
  Weight: 40.9 kg

DRUGS (16)
  1. ROCEFIN [Suspect]
     Active Substance: CEFTRIAXONE SODIUM
     Indication: URINARY TRACT INFECTION
     Route: 065
  2. FILGRASTIM [Concomitant]
     Active Substance: FILGRASTIM
     Indication: PROPHYLAXIS
     Route: 058
     Dates: start: 20140528, end: 20140530
  3. ALDACTONE (BRAZIL) [Concomitant]
     Indication: ASCITES
     Route: 048
     Dates: start: 201505
  4. RITUXIMAB [Suspect]
     Active Substance: RITUXIMAB
     Indication: DIFFUSE LARGE B-CELL LYMPHOMA
     Dosage: MOST RECENT DOSE PRIOR TO SERIOUS ADVERSE EVENT ON 03/JUL/2014
     Route: 042
     Dates: start: 20140417
  5. CARDUUS MARIANUS [Concomitant]
     Indication: BILE DUCT STONE
     Route: 048
     Dates: start: 201401, end: 201407
  6. FILGRASTIM [Concomitant]
     Active Substance: FILGRASTIM
     Route: 058
     Dates: start: 20140704, end: 20140707
  7. SULFAMETHOXAZOLE/TRIMETHOPRIM [Concomitant]
     Active Substance: SULFAMETHOXAZOLE\TRIMETHOPRIM
     Indication: PROPHYLAXIS
     Dosage: 800+160 MILLIGRAM (MG)
     Route: 048
     Dates: start: 20140417, end: 201407
  8. ONDANSETRON [Concomitant]
     Active Substance: ONDANSETRON
     Indication: NAUSEA
     Route: 048
     Dates: start: 20140417, end: 20140522
  9. WARFARIN [Concomitant]
     Active Substance: WARFARIN
     Indication: VENA CAVA THROMBOSIS
     Dosage: 1/2 CAPSULE
     Route: 048
     Dates: start: 201505
  10. GRANULOKINE [Concomitant]
     Active Substance: FILGRASTIM
     Indication: PROPHYLAXIS
     Dosage: ONCE
     Route: 058
     Dates: start: 20140605, end: 201407
  11. BUSCOPAN [Concomitant]
     Active Substance: BUTYLSCOPOLAMINE BROMIDE
     Indication: ABDOMINAL PAIN
     Route: 048
     Dates: start: 201312
  12. DRAMAMINE [Concomitant]
     Active Substance: DIMENHYDRINATE
     Indication: NAUSEA
     Dosage: 1 TAB
     Route: 065
     Dates: start: 20140417, end: 20150522
  13. URSODEOXYCHOLIC ACID [Concomitant]
     Active Substance: URSODIOL
     Indication: BILE DUCT STONE
     Dosage: 1 TAB
     Route: 048
     Dates: start: 1995
  14. ALDACTONE (BRAZIL) [Concomitant]
     Indication: SEPTIC SHOCK
     Route: 048
     Dates: start: 20151007, end: 20151010
  15. FLEBOCORTID [Concomitant]
     Active Substance: HYDROCORTISONE SODIUM SUCCINATE
     Indication: PRURITUS
     Route: 042
     Dates: start: 20140417, end: 20140417
  16. FILGRASTIM [Concomitant]
     Active Substance: FILGRASTIM
     Route: 058
     Dates: start: 20140606, end: 20140608

REACTIONS (1)
  - Septic shock [Fatal]

NARRATIVE: CASE EVENT DATE: 20151007
